FAERS Safety Report 17140418 (Version 1)
Quarter: 2019Q4

REPORT INFORMATION
  Report Type: Spontaneous
  Country: US (occurrence: US)
  Receive Date: 20191211
  Receipt Date: 20191211
  Transmission Date: 20200122
  Serious: No
  Sender: FDA-Public Use
  Company Number: US-GLENMARK PHARMACEUTICALS-2019GMK043867

PATIENT

DRUGS (3)
  1. HYDROCHLOROTHIAZIDE. [Concomitant]
     Active Substance: HYDROCHLOROTHIAZIDE
     Indication: HYPERTENSION
     Dosage: 25 MG, QD
     Route: 065
  2. DILTIAZEM. [Concomitant]
     Active Substance: DILTIAZEM
     Indication: HYPERTENSION
     Dosage: 180 MG, QD (DILTIAZEM 24H ER (CD))
     Route: 065
  3. AZELAIC ACID GEL, 15% [Suspect]
     Active Substance: AZELAIC ACID
     Indication: SKIN TEXTURE ABNORMAL
     Dosage: UNK, HS (ONCE EVERY NIGHT)
     Route: 061
     Dates: start: 2019, end: 20191106

REACTIONS (3)
  - Dry skin [Not Recovered/Not Resolved]
  - Product use in unapproved indication [Unknown]
  - Application site pain [Recovered/Resolved]

NARRATIVE: CASE EVENT DATE: 2019
